FAERS Safety Report 5291040-1 (Version None)
Quarter: 2007Q2

REPORT INFORMATION
  Report Type: 
  Country: None (occurrence: None)
  Receive Date: 20070409
  Receipt Date: 20070402
  Transmission Date: 20071010
  Serious: Yes (Hospitalization)
  Sender: FDA-Public Use
  Company Number: FR-AVENTIS-200711194FR

PATIENT
  Age: 92 Year
  Sex: Male
  Weight: 70 kg

DRUGS (13)
  1. LASILIX                            /00032601/ [Suspect]
     Indication: DRUG USE FOR UNKNOWN INDICATION
     Route: 048
     Dates: start: 20070101
  2. ESIDRIX [Suspect]
     Indication: DRUG USE FOR UNKNOWN INDICATION
     Route: 048
     Dates: start: 20070101
  3. DIGOXIN [Concomitant]
     Route: 048
  4. DIDRONEL                           /00553202/ [Concomitant]
  5. COVERSYL                           /00790701/ [Concomitant]
     Route: 048
  6. NEXIUM [Concomitant]
     Route: 048
  7. CORTANCYL [Concomitant]
     Route: 048
  8. CACIT D3 [Concomitant]
     Route: 048
  9. XANAX [Concomitant]
     Route: 048
  10. ZOLPIDEM [Concomitant]
     Route: 048
  11. CLAMOXYL                           /00249601/ [Concomitant]
     Route: 048
  12. SMECTA                             /01255901/ [Concomitant]
  13. DIURETICS [Concomitant]

REACTIONS (5)
  - ANOREXIA [None]
  - CONDITION AGGRAVATED [None]
  - DEHYDRATION [None]
  - RENAL FAILURE ACUTE [None]
  - VISION BLURRED [None]
